FAERS Safety Report 4895135-3 (Version None)
Quarter: 2006Q1

REPORT INFORMATION
  Report Type: 
  Country: None (occurrence: None)
  Receive Date: 20060125
  Receipt Date: 20051117
  Transmission Date: 20060701
  Serious: No
  Sender: FDA-Public Use
  Company Number: MK200601-0254-1

PATIENT
  Age: 54 Year
  Sex: Female

DRUGS (1)
  1. I-131 [Suspect]
     Indication: THYROID GLAND CANCER
     Dosage: 700M MCI CUMULATIVE, PO
     Route: 048
     Dates: start: 20030301, end: 20030901

REACTIONS (4)
  - DACRYOSTENOSIS ACQUIRED [None]
  - INFLAMMATION [None]
  - METASTASES TO LUNG [None]
  - METASTASES TO THE MEDIASTINUM [None]
